FAERS Safety Report 4533049-9 (Version None)
Quarter: 2004Q4

REPORT INFORMATION
  Report Type: 
  Country: None (occurrence: None)
  Receive Date: 20041206
  Receipt Date: 20041019
  Transmission Date: 20050328
  Serious: No
  Sender: FDA-Public Use
  Company Number: USA041081741

PATIENT
  Age: 40 Year
  Sex: Female

DRUGS (15)
  1. CYMBALTA [Suspect]
     Indication: DEPRESSION
     Dosage: 60 MG DAY
  2. PROZAC [Concomitant]
  3. VALTREX (VALACICLOVIR) [Concomitant]
  4. KLONOPIN [Concomitant]
  5. (ESOMEPRAZOLE MAGNESIUM) [Concomitant]
  6. SOMA [Concomitant]
  7. XENICAL [Concomitant]
  8. MORPHINE SULFATE [Concomitant]
  9. CARAFATE [Concomitant]
  10. MS CONTIN [Concomitant]
  11. REGLAN [Concomitant]
  12. LIDODERM (LIDOCAINE) [Concomitant]
  13. BENADRYL [Concomitant]
  14. MIRALAX [Concomitant]
  15. LIBRAX [Concomitant]

REACTIONS (1)
  - STRABISMUS [None]
